FAERS Safety Report 6057897-1 (Version None)
Quarter: 2009Q1

REPORT INFORMATION
  Report Type: 
  Country: None (occurrence: None)
  Receive Date: 20090126
  Receipt Date: 20090112
  Transmission Date: 20090719
  Serious: Yes (Death, Hospitalization)
  Sender: FDA-Public Use
  Company Number: KV200900068

PATIENT
  Age: 55 Year
  Sex: Male
  Weight: 68 kg

DRUGS (2)
  1. HYDROMORPHONE HYDROCHLORIDE (HYDROMORPHINE HYDROCHLORIDE) TABLET 2MG [Suspect]
     Indication: PAIN
     Dosage: 2 MG, 1-2 TABS-EVERY 4 HRS, ORAL
     Route: 048
     Dates: start: 20070101, end: 20080101
  2. HYDROMORPHONE HYDROCHLORIDE (HYDROMORPHONE HYDROCHLORIDE) TABLET, 4MG [Suspect]
     Indication: PAIN
     Dosage: 4 MG, 1-2 TABS EVERY 4 HRS, ORAL
     Route: 048
     Dates: start: 20080101, end: 20080101

REACTIONS (5)
  - BLOOD PRESSURE DECREASED [None]
  - CARDIAC ARREST [None]
  - DYSPNOEA [None]
  - PRODUCT QUALITY ISSUE [None]
  - SEPSIS [None]
